FAERS Safety Report 7848545 (Version 2)
Quarter: 2012Q4

REPORT INFORMATION
  Report Type: 
  Country: US (occurrence: US)
  Receive Date: 20110309
  Receipt Date: 20121115
  Transmission Date: 20130627
  Serious: Yes (Other)
  Sender: FDA-Public Use
  Company Number: US-PFIZER INC-2011048389

PATIENT
  Age: 14 Year
  Sex: Female
  Weight: 45.4 kg

DRUGS (2)
  1. DEPO-PROVERA [Suspect]
     Indication: BIRTH CONTROL
     Dosage: UNK
     Dates: start: 2001
  2. ZYRTEC-D [Concomitant]
     Indication: ALLERGY
     Dosage: UNK, daily

REACTIONS (3)
  - Infertility female [Unknown]
  - Menorrhagia [Not Recovered/Not Resolved]
  - Dysmenorrhoea [Not Recovered/Not Resolved]
